FAERS Safety Report 4731043-6 (Version None)
Quarter: 2005Q3

REPORT INFORMATION
  Report Type: 
  Country: None (occurrence: None)
  Receive Date: 20050726
  Receipt Date: 20040820
  Transmission Date: 20060218
  Serious: Yes (Life-Threatening, Hospitalization)
  Sender: FDA-Public Use
  Company Number: 04GER0199

PATIENT
  Age: 68 Year
  Sex: Male

DRUGS (14)
  1. AGGRASTAT [Suspect]
     Indication: ACUTE CORONARY SYNDROME
     Dosage: 10 ML/H, IV
     Route: 042
     Dates: start: 20040102, end: 20040102
  2. AGGRASTAT [Suspect]
     Indication: ACUTE CORONARY SYNDROME
     Dosage: 40 ML/ 30 MIN, IV
     Route: 042
     Dates: start: 20040102, end: 20040102
  3. HEPARIN [Suspect]
     Dosage: 1000 IU/H, INJ
     Dates: start: 20040101, end: 20040102
  4. CLOPIDOGREL BISULFATE [Suspect]
     Dosage: 300 MG/DAILY
     Dates: start: 20040101, end: 20040101
  5. CLOPIDOGREL BISULFATE [Suspect]
     Dosage: 75 MG/DAILY
     Dates: start: 20040102, end: 20040102
  6. CLOPIDOGREL BISULFATE [Suspect]
     Dosage: 75 MG/DAILY
     Dates: start: 20040104
  7. ASPIRIN [Concomitant]
  8. ASPIRIN [Concomitant]
  9. ASPIRIN [Concomitant]
  10. BENAZEPRIL HYDROCHLORIDE [Concomitant]
  11. BISOPROLOL FUMARATE [Concomitant]
  12. MORPHINE [Concomitant]
  13. NITRENDIPINE [Concomitant]
  14. NITROGLYCERIN [Concomitant]

REACTIONS (3)
  - ANGINA PECTORIS [None]
  - MUCOSAL HAEMORRHAGE [None]
  - THROMBOCYTOPENIA [None]
